FAERS Safety Report 5956849-7 (Version None)
Quarter: 2008Q4

REPORT INFORMATION
  Report Type: 
  Country: None (occurrence: None)
  Receive Date: 20081118
  Receipt Date: 20081107
  Transmission Date: 20090506
  Serious: Yes (Hospitalization, Other)
  Sender: FDA-Public Use
  Company Number: US-PFIZER INC-2008065437

PATIENT
  Sex: Female
  Weight: 63.5 kg

DRUGS (4)
  1. CHANTIX [Suspect]
     Indication: SMOKING CESSATION THERAPY
     Dates: start: 20080709, end: 20080901
  2. CARDIAC THERAPY [Concomitant]
  3. ANTIEPILEPTICS [Concomitant]
  4. CYMBALTA [Concomitant]

REACTIONS (3)
  - FEELING ABNORMAL [None]
  - HOMICIDAL IDEATION [None]
  - MEDICATION ERROR [None]
